FAERS Safety Report 9275194 (Version 2)
Quarter: 2013Q2

REPORT INFORMATION
  Report Type: Report from Study
  Country: US (occurrence: US)
  Receive Date: 20130507
  Receipt Date: 20130521
  Transmission Date: 20140414
  Serious: Yes (Other)
  Sender: FDA-Public Use
  Company Number: PHEH2013US008266

PATIENT
  Age: 56 Year
  Sex: Male

DRUGS (2)
  1. GLEEVEC [Suspect]
     Dosage: 400 MG, QD
     Route: 048
  2. GEMZAR [Concomitant]
     Indication: GASTROINTESTINAL STROMAL TUMOUR
     Dosage: UNK UKN, WEEKLY
     Route: 042

REACTIONS (6)
  - Gastrointestinal stromal tumour [Not Recovered/Not Resolved]
  - Malignant neoplasm progression [Not Recovered/Not Resolved]
  - Disease progression [Not Recovered/Not Resolved]
  - Metastatic neoplasm [Not Recovered/Not Resolved]
  - Malignant ascites [Not Recovered/Not Resolved]
  - Drug ineffective [Not Recovered/Not Resolved]
